FAERS Safety Report 5300326-3 (Version None)
Quarter: 2007Q2

REPORT INFORMATION
  Report Type: 
  Country: None (occurrence: None)
  Receive Date: 20070413
  Receipt Date: 20070413
  Transmission Date: 20071010
  Serious: Yes (Other)
  Sender: FDA-Public Use
  Company Number: None

PATIENT
  Sex: Male
  Weight: 113.3993 kg

DRUGS (2)
  1. ATENOLOL [Suspect]
     Indication: AORTIC VALVE REPLACEMENT
     Dosage: 50MG  2/DAY  PO
     Route: 048
     Dates: start: 20061001, end: 20070307
  2. ATENOLOL [Suspect]
     Indication: MARFAN'S SYNDROME
     Dosage: 50MG  2/DAY  PO
     Route: 048
     Dates: start: 20061001, end: 20070307

REACTIONS (14)
  - BALANCE DISORDER [None]
  - DISORIENTATION [None]
  - DIZZINESS [None]
  - EAR INFECTION VIRAL [None]
  - FALL [None]
  - HEART RATE DECREASED [None]
  - HEART RATE IRREGULAR [None]
  - LABYRINTHITIS [None]
  - OVERDOSE [None]
  - PHARMACEUTICAL PRODUCT COMPLAINT [None]
  - PITUITARY TUMOUR BENIGN [None]
  - PUPILS UNEQUAL [None]
  - SUPRAVENTRICULAR EXTRASYSTOLES [None]
  - SYNCOPE [None]
